FAERS Safety Report 12130461 (Version 1)
Quarter: 2016Q1

REPORT INFORMATION
  Report Type: Spontaneous
  Country: US (occurrence: US)
  Receive Date: 20160301
  Receipt Date: 20160301
  Transmission Date: 20160526
  Serious: No
  Sender: FDA-Public Use
  Company Number: US-BIOGEN-2016BI00191391

PATIENT
  Sex: Male

DRUGS (1)
  1. TYSABRI [Suspect]
     Active Substance: NATALIZUMAB
     Indication: MULTIPLE SCLEROSIS
     Dates: start: 20151202

REACTIONS (14)
  - Feeding disorder [Unknown]
  - Drug effect decreased [Unknown]
  - Fatigue [Unknown]
  - Weight decreased [Unknown]
  - Drug ineffective [Recovered/Resolved]
  - Malaise [Unknown]
  - Pain in extremity [Recovered/Resolved with Sequelae]
  - Nerve compression [Unknown]
  - Mobility decreased [Recovered/Resolved with Sequelae]
  - Lethargy [Unknown]
  - Cognitive disorder [Not Recovered/Not Resolved]
  - Quality of life decreased [Unknown]
  - Stress [Not Recovered/Not Resolved]
  - Hypoaesthesia [Recovered/Resolved]
